FAERS Safety Report 7861170-6 (Version None)
Quarter: 2011Q4

REPORT INFORMATION
  Report Type: 
  Country: None (occurrence: None)
  Receive Date: 20111027
  Receipt Date: 20111021
  Transmission Date: 20120403
  Serious: No
  Sender: FDA-Public Use
  Company Number: US-PFIZER INC-2010089841

PATIENT
  Sex: Female

DRUGS (2)
  1. ANTIVERT [Suspect]
     Indication: BALANCE DISORDER
     Dosage: 25 MG, UNK
  2. ANTIVERT [Suspect]
     Indication: INNER EAR DISORDER
     Dosage: 12.5 MG, UNK

REACTIONS (2)
  - INCORRECT DOSE ADMINISTERED [None]
  - BALANCE DISORDER [None]
